FAERS Safety Report 5818549-3 (Version None)
Quarter: 2008Q3

REPORT INFORMATION
  Report Type: 
  Country: None (occurrence: None)
  Receive Date: 20080718
  Receipt Date: 20080710
  Transmission Date: 20090109
  Serious: Yes (Hospitalization)
  Sender: FDA-Public Use
  Company Number: 2008SP001567

PATIENT
  Age: 36 Year
  Sex: Male
  Weight: 96.82 kg

DRUGS (8)
  1. LUNESTA [Suspect]
     Indication: INSOMNIA
     Dosage: 3 MG; HS; ORAL, 3 MG; HS; ORAL, 3 MG; QID; ORAL, 2 MG; HS; ORAL
     Route: 048
     Dates: start: 20050101, end: 20071001
  2. LUNESTA [Suspect]
     Indication: INSOMNIA
     Dosage: 3 MG; HS; ORAL, 3 MG; HS; ORAL, 3 MG; QID; ORAL, 2 MG; HS; ORAL
     Route: 048
     Dates: start: 20080125, end: 20080101
  3. LUNESTA [Suspect]
     Indication: INSOMNIA
     Dosage: 3 MG; HS; ORAL, 3 MG; HS; ORAL, 3 MG; QID; ORAL, 2 MG; HS; ORAL
     Route: 048
     Dates: start: 20071101
  4. HYDROCODONE BITARTRATE [Concomitant]
  5. OXYCODONE HCL [Concomitant]
  6. NEURONTIN [Concomitant]
  7. ZYRTEC [Concomitant]
  8. CLONAZEPAM [Concomitant]

REACTIONS (3)
  - BRONCHIOLITIS [None]
  - PLEURISY [None]
  - PNEUMONIA [None]
